FAERS Safety Report 19727631 (Version 4)
Quarter: 2022Q2

REPORT INFORMATION
  Report Type: Report from Study
  Country: US (occurrence: US)
  Receive Date: 20210819
  Receipt Date: 20220404
  Transmission Date: 20220721
  Serious: Yes (Other)
  Sender: FDA-Public Use
  Company Number: US-ABBVIE-21K-163-4044203-00

PATIENT
  Sex: Male
  Weight: 105.78 kg

DRUGS (3)
  1. RINVOQ [Suspect]
     Active Substance: UPADACITINIB
     Indication: Rheumatoid arthritis
     Route: 048
     Dates: start: 202101
  2. MODERNA COVID-19 VACCINE [Concomitant]
     Active Substance: ELASOMERAN
     Indication: COVID-19 immunisation
     Route: 030
     Dates: start: 20210415, end: 20210415
  3. MODERNA COVID-19 VACCINE [Concomitant]
     Active Substance: ELASOMERAN
     Route: 030
     Dates: start: 20210515, end: 20210515

REACTIONS (12)
  - Malignant melanoma [Recovered/Resolved]
  - Umbilical hernia [Not Recovered/Not Resolved]
  - Malignant melanoma [Not Recovered/Not Resolved]
  - Cyst [Unknown]
  - Joint swelling [Unknown]
  - Arthralgia [Not Recovered/Not Resolved]
  - Depression [Not Recovered/Not Resolved]
  - Hypertension [Not Recovered/Not Resolved]
  - Poor quality sleep [Unknown]
  - Drug ineffective [Unknown]
  - Unevaluable event [Unknown]
  - Blood cholesterol increased [Not Recovered/Not Resolved]

NARRATIVE: CASE EVENT DATE: 20210101
